FAERS Safety Report 13733831 (Version 1)
Quarter: 2017Q3

REPORT INFORMATION
  Report Type: Spontaneous
  Country: US (occurrence: US)
  Receive Date: 20170707
  Receipt Date: 20170707
  Transmission Date: 20171127
  Serious: Yes (Hospitalization, Other)
  Sender: FDA-Public Use
  Company Number: US-ABBVIE-17P-163-2026921-00

PATIENT
  Sex: Male

DRUGS (1)
  1. LEUPROLIDE ACETATE DEPOT [Suspect]
     Active Substance: LEUPROLIDE ACETATE
     Indication: MATERNAL EXPOSURE TIMING UNSPECIFIED
     Route: 064

REACTIONS (10)
  - Wheezing [Not Recovered/Not Resolved]
  - Gastrooesophageal reflux disease [Unknown]
  - Sinus disorder [Not Recovered/Not Resolved]
  - Adenoidal disorder [Recovered/Resolved]
  - Foetal exposure during pregnancy [Unknown]
  - Asthma [Not Recovered/Not Resolved]
  - Heart rate decreased [Recovered/Resolved]
  - Adenoidectomy [Recovered/Resolved]
  - Ear infection [Not Recovered/Not Resolved]
  - Tonsillectomy [Recovered/Resolved]

NARRATIVE: CASE EVENT DATE: 200907
